FAERS Safety Report 15764982 (Version 1)
Quarter: 2018Q4

REPORT INFORMATION
  Report Type: Spontaneous
  Country: FR (occurrence: FR)
  Receive Date: 20181227
  Receipt Date: 20181227
  Transmission Date: 20190205
  Serious: Yes (Hospitalization)
  Sender: FDA-Public Use
  Company Number: FR-SAKK-2018SA342271AA

PATIENT
  Age: 88 Year
  Sex: Male

DRUGS (9)
  1. GENTAMICINE PANPHARMA [Concomitant]
     Active Substance: GENTAMICIN
     Indication: ENDOCARDITIS
     Dosage: 160 MG, QD
     Route: 042
     Dates: start: 20181108, end: 20181108
  2. RIFADINE [Suspect]
     Active Substance: RIFAMPIN
     Indication: ENDOCARDITIS
     Dosage: 600 MG, QD
     Route: 048
     Dates: start: 20181116
  3. ORBENINE [Concomitant]
     Active Substance: CLOXACILLIN SODIUM
     Indication: ENDOCARDITIS
     Dosage: 2 G, Q4H
     Route: 042
     Dates: start: 20181031, end: 20181101
  4. DOLIPRANE [Suspect]
     Active Substance: ACETAMINOPHEN
     Indication: PAIN
     Dosage: 3 G, QD
     Route: 048
     Dates: start: 20181031
  5. TEICOPLANIN [Suspect]
     Active Substance: TEICOPLANIN
     Indication: ENDOCARDITIS
     Dosage: 400 MG, QD
     Route: 042
     Dates: start: 20181115, end: 20181123
  6. DAPTOMYCINE [Concomitant]
     Active Substance: DAPTOMYCIN
     Indication: ENDOCARDITIS
     Dosage: 600 MG, QD
     Route: 042
     Dates: start: 20181106, end: 20181115
  7. VANCOMYCINE [VANCOMYCIN] [Concomitant]
     Indication: ENDOCARDITIS
     Dosage: 1900 MG, CONT
     Route: 042
     Dates: start: 20181102, end: 20181106
  8. WARFARIN SODIUM. [Suspect]
     Active Substance: WARFARIN SODIUM
     Indication: CARDIOMYOPATHY
     Dosage: 2 MG, QD
     Route: 048
     Dates: start: 20181113
  9. ZINFORO [Concomitant]
     Active Substance: CEFTAROLINE FOSAMIL
     Indication: ENDOCARDITIS
     Dosage: 1200 MG, QD
     Route: 042
     Dates: start: 20181110, end: 20181115

REACTIONS (1)
  - Vascular purpura [Not Recovered/Not Resolved]

NARRATIVE: CASE EVENT DATE: 20181122
